FAERS Safety Report 6701883-2 (Version None)
Quarter: 2010Q2

REPORT INFORMATION
  Report Type: 
  Country: None (occurrence: None)
  Receive Date: 20100429
  Receipt Date: 20100426
  Transmission Date: 20101027
  Serious: Yes (Hospitalization)
  Sender: FDA-Public Use
  Company Number: JP-BAYER-201011399BYL

PATIENT
  Age: 64 Year
  Sex: Female
  Weight: 47 kg

DRUGS (6)
  1. NEXAVAR [Suspect]
     Indication: RENAL CELL CARCINOMA
     Dosage: TOTAL DAILY DOSE: 200 MG  UNIT DOSE: 200 MG
     Route: 048
     Dates: start: 20100316, end: 20100325
  2. ASPIRIN [Concomitant]
     Indication: PROPHYLAXIS
     Dosage: UNIT DOSE: 100 MG
     Route: 048
  3. OLMESARTAN MEDOXOMIL [Concomitant]
     Indication: HYPERTENSION
     Dosage: UNIT DOSE: 20 MG
     Route: 048
  4. ADALAT CC [Concomitant]
     Indication: HYPERTENSION
     Dosage: UNIT DOSE: 20 MG
     Route: 048
  5. CALCIUM CARBONATE [Concomitant]
     Indication: RENAL FAILURE CHRONIC
     Dosage: UNIT DOSE: 500 MG
     Route: 048
  6. SUMIFERON [Concomitant]
     Dosage: TOTAL DAILY DOSE: 3 MIU  UNIT DOSE: 3 MIU
     Route: 058
     Dates: start: 20080318, end: 20100201

REACTIONS (3)
  - CEREBRAL INFARCTION [None]
  - HYPERTENSION [None]
  - HYPOAESTHESIA [None]
